FAERS Safety Report 8830116 (Version 1)
Quarter: 2012Q4

REPORT INFORMATION
  Report Type: Spontaneous
  Country: US (occurrence: None)
  Receive Date: 20121005
  Receipt Date: 20121005
  Transmission Date: 20130627
  Serious: No
  Sender: FDA-Public Use
  Company Number: None

PATIENT
  Age: 45 Year
  Sex: Female
  Weight: 54.43 kg

DRUGS (1)
  1. CYCLOBENZAPRINE [Suspect]
     Dosage: 2 dates separately in September 2012 not exactly known
     Route: 048
     Dates: start: 201209, end: 201209

REACTIONS (1)
  - Insomnia [None]
